FAERS Safety Report 5203674-0 (Version None)
Quarter: 2007Q1

REPORT INFORMATION
  Report Type: 
  Country: None (occurrence: None)
  Receive Date: 20070105
  Receipt Date: 20070105
  Transmission Date: 20070707
  Serious: Yes (Other)
  Sender: FDA-Public Use
  Company Number: None

PATIENT
  Sex: Female
  Weight: 2.5 kg

DRUGS (17)
  1. VECURONIUM BROMIDE [Suspect]
     Indication: DRUG THERAPY
     Dosage: 0.1 MG/KG/HR  CONTIN.INFUSION  IV DRIP
     Route: 041
     Dates: start: 20030621, end: 20030625
  2. VECURONIUM BROMIDE [Suspect]
     Indication: DRUG THERAPY
     Dosage: 0.1 MG/KG/HR   CONTIN.INFUSION   IV DRIP
     Route: 041
     Dates: start: 20030703, end: 20030703
  3. NYSTATIN [Concomitant]
  4. NAFCILLIN SODIUM [Concomitant]
  5. FUROSEMIDE [Concomitant]
  6. FENTANYL CITRATE [Concomitant]
  7. SODIUM CHLORIDE [Concomitant]
  8. TPN [Concomitant]
  9. DOPAMINE HCL [Concomitant]
  10. ACETAMINOPHEN [Concomitant]
  11. MORPHINE SUL INJ [Concomitant]
  12. POTASSIUM CHLORIDE [Concomitant]
  13. ALBUMIN (HUMAN) [Concomitant]
  14. BICARBONATE [Concomitant]
  15. DIGOXIN [Concomitant]
  16. CEFTAZIDIME [Concomitant]
  17. CALCIUM GLUCONATE [Concomitant]

REACTIONS (2)
  - GENERAL PHYSICAL HEALTH DETERIORATION [None]
  - MEDICATION ERROR [None]
